FAERS Safety Report 9596161 (Version 1)
Quarter: 2013Q4

REPORT INFORMATION
  Report Type: Spontaneous
  Country: CA (occurrence: CA)
  Receive Date: 20131004
  Receipt Date: 20131004
  Transmission Date: 20140711
  Serious: Yes (Death, Other)
  Sender: FDA-Public Use
  Company Number: CA-009507513-1310CAN001309

PATIENT
  Sex: Male

DRUGS (2)
  1. EMEND [Suspect]
     Indication: PRODUCT USED FOR UNKNOWN INDICATION
     Dosage: 125 MG, UNK
     Route: 048
  2. EMEND [Suspect]
     Dosage: 80 MG, UNK
     Route: 048

REACTIONS (1)
  - Metastatic neoplasm [Fatal]
